FAERS Safety Report 16858837 (Version 2)
Quarter: 2019Q4

REPORT INFORMATION
  Report Type: Spontaneous
  Country: CA (occurrence: CA)
  Receive Date: 20190926
  Receipt Date: 20191105
  Transmission Date: 20200122
  Serious: Yes (Hospitalization)
  Sender: FDA-Public Use
  Company Number: CA-ACTELION-A-NJ2019-195975

PATIENT
  Age: 73 Year
  Sex: Female

DRUGS (17)
  1. SPIRONOLACTONE. [Concomitant]
     Active Substance: SPIRONOLACTONE
  2. VITAMIN B12 [Concomitant]
     Active Substance: CYANOCOBALAMIN
  3. OXYGEN. [Concomitant]
     Active Substance: OXYGEN
  4. LASIX [Concomitant]
     Active Substance: FUROSEMIDE
  5. SYNTHROID [Concomitant]
     Active Substance: LEVOTHYROXINE SODIUM
  6. ASPIRIN. [Concomitant]
     Active Substance: ASPIRIN
  7. TYLENOL ARTHRITIS PAIN [Concomitant]
     Active Substance: ACETAMINOPHEN
  8. STOOL SOFTENER (DOCUSATE) [Concomitant]
     Active Substance: DOCUSATE
  9. UPTRAVI [Suspect]
     Active Substance: SELEXIPAG
     Indication: PULMONARY ARTERIAL HYPERTENSION
     Dosage: 1000 MCG
     Route: 048
     Dates: start: 20170918
  10. ROSUVASTATIN. [Concomitant]
     Active Substance: ROSUVASTATIN
  11. POTASSIUM [Concomitant]
     Active Substance: POTASSIUM
  12. BISOPROLOL [Concomitant]
     Active Substance: BISOPROLOL
  13. FUROSEMIDE. [Concomitant]
     Active Substance: FUROSEMIDE
     Dosage: 20 MG, TID
  14. ADCIRCA [Concomitant]
     Active Substance: TADALAFIL
  15. IRON [Concomitant]
     Active Substance: IRON
  16. VITAMIN D [Concomitant]
     Active Substance: VITAMIN D NOS
  17. TRACLEER [Suspect]
     Active Substance: BOSENTAN
     Indication: PULMONARY ARTERIAL HYPERTENSION
     Dosage: 125 MG
     Route: 048
     Dates: start: 20170918

REACTIONS (3)
  - Product dose omission [Unknown]
  - Fluid retention [Recovering/Resolving]
  - Malaise [Recovering/Resolving]

NARRATIVE: CASE EVENT DATE: 201906
